FAERS Safety Report 6856574-4 (Version None)
Quarter: 2010Q3

REPORT INFORMATION
  Report Type: 
  Country: None (occurrence: None)
  Receive Date: 20100719
  Receipt Date: 20100709
  Transmission Date: 20110219
  Serious: Yes (Other)
  Sender: FDA-Public Use
  Company Number: US-ROCHE-715114

PATIENT
  Sex: Female
  Weight: 66.8 kg

DRUGS (2)
  1. BONIVA [Suspect]
     Indication: OSTEOPOROSIS
     Route: 048
     Dates: start: 20100630
  2. VITAMIN D3 [Concomitant]

REACTIONS (11)
  - CONCUSSION [None]
  - CONTUSION [None]
  - DIARRHOEA [None]
  - DRUG HYPERSENSITIVITY [None]
  - FACE INJURY [None]
  - FALL [None]
  - HYPOAESTHESIA [None]
  - INFLUENZA LIKE ILLNESS [None]
  - LOSS OF CONSCIOUSNESS [None]
  - MUSCULOSKELETAL CHEST PAIN [None]
  - VOMITING [None]
